FAERS Safety Report 24951215 (Version 1)
Quarter: 2025Q1

REPORT INFORMATION
  Report Type: Spontaneous
  Country: US (occurrence: US)
  Receive Date: 20250210
  Receipt Date: 20250210
  Transmission Date: 20250409
  Serious: Yes (Other)
  Sender: CSL BEHRING
  Company Number: US-BEH-2025194377

PATIENT
  Age: 80 Year
  Sex: Female

DRUGS (23)
  1. HIZENTRA [Suspect]
     Active Substance: HUMAN IMMUNOGLOBULIN G
     Indication: Hypogammaglobulinaemia
     Dosage: 10 G, QW(10G/50ML)
     Route: 058
     Dates: start: 20241105
  2. ACETAMINOPHEN [Concomitant]
     Active Substance: ACETAMINOPHEN
  3. ASCORBIC ACID [Concomitant]
     Active Substance: ASCORBIC ACID
  4. ATROVENT [Concomitant]
     Active Substance: IPRATROPIUM BROMIDE
  5. BETAMETHASONE [Concomitant]
     Active Substance: BETAMETHASONE
  6. CLARITIN [Concomitant]
     Active Substance: LORATADINE
  7. COLACE [Concomitant]
     Active Substance: DOCUSATE SODIUM
  8. COENZYME Q10 [Concomitant]
     Active Substance: DIETARY SUPPLEMENT\UBIDECARENONE
  9. CRESTOR [Concomitant]
     Active Substance: ROSUVASTATIN CALCIUM
  10. DILTIAZEM [Concomitant]
     Active Substance: DILTIAZEM
  11. ELIQUIS [Concomitant]
     Active Substance: APIXABAN
  12. EPINEPHRINE [Concomitant]
     Active Substance: EPINEPHRINE
  13. HYDROCHLOROTHIAZIDE [Concomitant]
     Active Substance: HYDROCHLOROTHIAZIDE
  14. LASIX [Concomitant]
     Active Substance: FUROSEMIDE
  15. LEVOTHYROXINE SODIUM [Concomitant]
     Active Substance: LEVOTHYROXINE SODIUM
  16. LOSARTAN POTASSIUM [Concomitant]
     Active Substance: LOSARTAN POTASSIUM
  17. METAMUCIL [Concomitant]
     Active Substance: PLANTAGO SEED
  18. METRONIDAZOLE [Concomitant]
     Active Substance: METRONIDAZOLE
  19. VITAMINS [Concomitant]
     Active Substance: VITAMINS
  20. POTASSIUM CHLORIDE [Concomitant]
     Active Substance: POTASSIUM CHLORIDE
  21. PROBIOTICS NOS [Concomitant]
     Active Substance: PROBIOTICS NOS
  22. VITAMIN B12 [Concomitant]
     Active Substance: CYANOCOBALAMIN
  23. VITAMIN D3 [Concomitant]
     Active Substance: CHOLECALCIFEROL

REACTIONS (4)
  - Drug ineffective [Recovered/Resolved]
  - Infusion site haemorrhage [Recovered/Resolved]
  - Product dose omission in error [Recovered/Resolved]
  - Product supply issue [Recovered/Resolved]

NARRATIVE: CASE EVENT DATE: 20250130
